FAERS Safety Report 9282220 (Version 1)
Quarter: 2013Q2

REPORT INFORMATION
  Report Type: Spontaneous
  Country: US (occurrence: None)
  Receive Date: 20130509
  Receipt Date: 20130509
  Transmission Date: 20140414
  Serious: Yes (Death)
  Sender: FDA-Public Use
  Company Number: None

PATIENT
  Age: 58 Year
  Sex: Female

DRUGS (5)
  1. STIVARGA 40MG BAYER [Suspect]
     Indication: LUNG NEOPLASM MALIGNANT
     Dosage: 160MG DAILY PO
     Route: 048
  2. FUROSEMIDE [Concomitant]
  3. MORPHINE [Concomitant]
  4. CARTIA [Concomitant]
  5. FENTANYL [Suspect]

REACTIONS (1)
  - Death [None]
